FAERS Safety Report 5097978-2 (Version None)
Quarter: 2006Q3

REPORT INFORMATION
  Report Type: 
  Country: None (occurrence: None)
  Receive Date: 20060905
  Receipt Date: 20060905
  Transmission Date: 20061208
  Serious: Yes (Other)
  Sender: FDA-Public Use
  Company Number: None

PATIENT
  Age: 36 Year
  Sex: Female
  Weight: 90.7194 kg

DRUGS (2)
  1. LEXAPRO [Suspect]
     Indication: DEPRESSION
     Dosage: 20 MG    QD   PO
     Route: 048
     Dates: start: 20060503, end: 20060901
  2. WELLBUTRIN XL [Suspect]
     Indication: ANXIETY
     Dosage: 150 MG   2 TABS QAM  PO
     Route: 048
     Dates: start: 20060608, end: 20060901

REACTIONS (7)
  - ANTEPARTUM HAEMORRHAGE [None]
  - BLIGHTED OVUM [None]
  - CAESAREAN SECTION [None]
  - DRUG EXPOSURE DURING PREGNANCY [None]
  - HAEMOGLOBIN DECREASED [None]
  - HAEMORRHAGE [None]
  - INTRA-UTERINE DEATH [None]
